FAERS Safety Report 16117337 (Version 1)
Quarter: 2019Q1

REPORT INFORMATION
  Report Type: Spontaneous
  Country: US (occurrence: US)
  Receive Date: 20190221
  Receipt Date: 20190221
  Transmission Date: 20190418
  Serious: No
  Sender: FDA-Public Use
  Company Number: None

PATIENT
  Age: 62 Year
  Sex: Female

DRUGS (1)
  1. LEFLUNOMIDE TAB [Suspect]
     Active Substance: LEFLUNOMIDE
     Indication: RHEUMATOID ARTHRITIS
     Dates: start: 201810

REACTIONS (3)
  - Abnormal faeces [None]
  - Urine odour abnormal [None]
  - Skin odour abnormal [None]

NARRATIVE: CASE EVENT DATE: 20190221
